FAERS Safety Report 18214536 (Version 1)
Quarter: 2020Q3

REPORT INFORMATION
  Report Type: Spontaneous
  Country: PT (occurrence: PT)
  Receive Date: 20200831
  Receipt Date: 20200831
  Transmission Date: 20201103
  Serious: Yes (Life-Threatening, Hospitalization, Other)
  Sender: FDA-Public Use
  Company Number: PT-MYLANLABS-2019M1056314

PATIENT
  Age: 73 Year
  Sex: Female

DRUGS (5)
  1. AMOXICILLIN/CLAVULANIC ACID [Suspect]
     Active Substance: AMOXICILLIN\CLAVULANIC ACID
     Dosage: 1DF(FIRST ADMINISTRATION WAS BY THE INTRAVENOUS ROUTE IN THE EMERGENCY DEPARTMENT)
     Route: 042
  2. CLEMASTINE [Suspect]
     Active Substance: CLEMASTINE
     Indication: ANAPHYLACTIC SHOCK
     Dosage: 2 MILLIGRAM
     Route: 065
  3. HYDROCORTISONE. [Suspect]
     Active Substance: HYDROCORTISONE
     Indication: ANAPHYLACTIC SHOCK
     Dosage: 200 MILLIGRAM
     Route: 065
  4. AMOXICILLIN/CLAVULANIC ACID [Suspect]
     Active Substance: AMOXICILLIN\CLAVULANIC ACID
     Indication: PNEUMONIA
     Dosage: UNK(UNK UNK, UNKNOWN FREQ.)
     Route: 042
  5. INSULIN [Concomitant]
     Active Substance: INSULIN NOS
     Indication: TYPE 2 DIABETES MELLITUS
     Dosage: UNK

REACTIONS (12)
  - Kounis syndrome [Recovering/Resolving]
  - Arteriosclerosis [Recovering/Resolving]
  - Anaphylactic shock [Recovering/Resolving]
  - Drug ineffective [Unknown]
  - Cardio-respiratory arrest [Recovering/Resolving]
  - Altered state of consciousness [Recovering/Resolving]
  - Electrocardiogram ST segment elevation [Recovered/Resolved]
  - Disease progression [Unknown]
  - Anaphylactic reaction [Recovering/Resolving]
  - Rash [Recovering/Resolving]
  - Shock [Recovering/Resolving]
  - Arteriospasm coronary [Recovering/Resolving]
